FAERS Safety Report 8688574 (Version 2)
Quarter: 2013Q1

REPORT INFORMATION
  Report Type: Spontaneous
  Country: US (occurrence: US)
  Receive Date: 20120727
  Receipt Date: 20130326
  Transmission Date: 20140127
  Serious: No
  Sender: FDA-Public Use
  Company Number: US-ASTRAZENECA-2011SE65465

PATIENT
  Age: 59 Year
  Sex: Female

DRUGS (5)
  1. SEROQUEL [Suspect]
     Indication: DEPRESSION
     Route: 048
  2. SEROQUEL [Suspect]
     Indication: DEPRESSION
     Route: 048
  3. SEROQUEL [Suspect]
     Indication: DEPRESSION
     Route: 048
  4. SEROQUEL [Suspect]
     Indication: DEPRESSION
     Dosage: 600 MG
     Route: 048
  5. SEROQUEL [Suspect]
     Indication: DEPRESSION
     Route: 048

REACTIONS (5)
  - Diabetes mellitus [Unknown]
  - Weight loss poor [Unknown]
  - Panic attack [Unknown]
  - Weight increased [Unknown]
  - Drug ineffective [Unknown]
